FAERS Safety Report 9876888 (Version 2)
Quarter: 2014Q4

REPORT INFORMATION
  Report Type: Spontaneous
  Country: DK (occurrence: DK)
  Receive Date: 20140206
  Receipt Date: 20141014
  Transmission Date: 20150529
  Serious: Yes (Other)
  Sender: FDA-Public Use
  Company Number: DK-ACCORD-021730

PATIENT
  Age: 52 Year
  Sex: Female

DRUGS (5)
  1. TAMOXIFEN [Concomitant]
     Active Substance: TAMOXIFEN
  2. ARIMIDEX [Concomitant]
     Active Substance: ANASTROZOLE
     Dates: end: 20101022
  3. EPIRUBICIN [Suspect]
     Active Substance: EPIRUBICIN
     Indication: CHEMOTHERAPY
     Dates: start: 20050329, end: 20050811
  4. CYCLOPHOSPHAMIDE/CYCLOPHOSPHAMIDE MONOHYDRATE [Suspect]
     Active Substance: CYCLOPHOSPHAMIDE
     Indication: CHEMOTHERAPY
     Dates: start: 20050329, end: 20050811
  5. FLUOROURACIL. [Suspect]
     Active Substance: FLUOROURACIL
     Indication: CHEMOTHERAPY
     Dates: start: 20050329, end: 20050811

REACTIONS (7)
  - Depression [Unknown]
  - Osteoporosis [Unknown]
  - Periodontitis [Unknown]
  - Disturbance in attention [Unknown]
  - Memory impairment [Unknown]
  - Motor dysfunction [Unknown]
  - Asthenia [Unknown]
